FAERS Safety Report 7858614-2 (Version None)
Quarter: 2011Q4

REPORT INFORMATION
  Report Type: 
  Country: None (occurrence: None)
  Receive Date: 20111027
  Receipt Date: 20101217
  Transmission Date: 20120403
  Serious: Yes (Other)
  Sender: FDA-Public Use
  Company Number: US-BAYER-201016359NA

PATIENT
  Sex: Female

DRUGS (4)
  1. YAZ [Suspect]
     Route: 048
     Dates: start: 20080801
  2. YASMIN [Suspect]
     Indication: PRODUCT USED FOR UNKNOWN INDICATION
     Route: 048
     Dates: start: 20040401
  3. YAZ [Suspect]
     Indication: PRODUCT USED FOR UNKNOWN INDICATION
     Route: 048
     Dates: start: 20040401
  4. YASMIN [Suspect]
     Route: 048
     Dates: start: 20080801

REACTIONS (1)
  - MYOCARDIAL INFARCTION [None]
